FAERS Safety Report 22120603 (Version 1)
Quarter: 2023Q1

REPORT INFORMATION
  Report Type: Spontaneous
  Country: BR (occurrence: BR)
  Receive Date: 20230321
  Receipt Date: 20230321
  Transmission Date: 20230418
  Serious: Yes (Hospitalization)
  Sender: FDA-Public Use
  Company Number: BR-CELLTRION INC.-2023BR005844

PATIENT

DRUGS (4)
  1. INFLIXIMAB [Suspect]
     Active Substance: INFLIXIMAB
     Indication: Crohn^s disease
     Dosage: 4 AMPOULES
     Route: 042
  2. SIMETHICONE (DIMETHICONE) [Concomitant]
     Active Substance: DIMETHICONE
     Dosage: 20 DROPS EVERY 8 HOURS
  3. CIPROFLOXACIN [Concomitant]
     Active Substance: CIPROFLOXACIN
     Dosage: 500 MG 2 TABLETS A DAY FOR 7 DAYS
  4. COVID-19 VACCINE [Concomitant]
     Dosage: UNK
     Dates: start: 20230315

REACTIONS (2)
  - Hospitalisation [Unknown]
  - Intentional dose omission [Unknown]
